FAERS Safety Report 7529914-0 (Version None)
Quarter: 2011Q2

REPORT INFORMATION
  Report Type: 
  Country: None (occurrence: None)
  Receive Date: 20110607
  Receipt Date: 20110602
  Transmission Date: 20111010
  Serious: Yes (Other)
  Sender: FDA-Public Use
  Company Number: VE-PFIZER INC-2011096872

PATIENT
  Age: 65 Year
  Sex: Female

DRUGS (4)
  1. LIPITOR [Suspect]
     Indication: HYPERCHOLESTEROLAEMIA
     Dosage: 40 MG, 1X/DAY
     Route: 048
     Dates: start: 20040101
  2. DIAMICRON [Concomitant]
     Indication: DIABETES MELLITUS
     Dosage: UNK
     Route: 048
  3. COZAAR [Concomitant]
     Indication: HYPERTENSION
     Dosage: 100 MG, 1X/DAY
     Route: 048
  4. ATAMEL [Concomitant]
     Indication: ANALGESIC THERAPY
     Dosage: 650 MG, 3X/DAY
     Route: 048
     Dates: start: 20110401

REACTIONS (4)
  - FALL [None]
  - COAGULOPATHY [None]
  - MOUTH INJURY [None]
  - MENISCUS OPERATION [None]
